FAERS Safety Report 5890284-5 (Version None)
Quarter: 2008Q3

REPORT INFORMATION
  Report Type: 
  Country: None (occurrence: None)
  Receive Date: 20080919
  Receipt Date: 20080915
  Transmission Date: 20090109
  Serious: Yes (Hospitalization, Other)
  Sender: FDA-Public Use
  Company Number: US-ABBOTT-08P-163-0441103-00

PATIENT
  Sex: Female
  Weight: 83.536 kg

DRUGS (14)
  1. HUMIRA [Suspect]
     Indication: RHEUMATOID ARTHRITIS
     Dates: start: 20040512, end: 20080201
  2. FOSINOPRIL SODIUM [Concomitant]
     Indication: HYPERTENSION
     Route: 048
  3. GLIPIZIDE [Concomitant]
     Indication: DRUG USE FOR UNKNOWN INDICATION
  4. ALENDRONATE SODIUM [Concomitant]
     Indication: DRUG USE FOR UNKNOWN INDICATION
     Route: 048
  5. FOLIC ACID [Concomitant]
     Indication: DRUG USE FOR UNKNOWN INDICATION
     Route: 048
  6. LOSARTAN POTASSIUM [Concomitant]
     Indication: HYPERTENSION
     Route: 048
  7. FUROSEMIDE [Concomitant]
     Indication: DRUG USE FOR UNKNOWN INDICATION
     Route: 048
  8. CALCIUM PLUS MAGNESIUM [Concomitant]
     Indication: DRUG USE FOR UNKNOWN INDICATION
  9. IBUPROFEN [Concomitant]
     Indication: DRUG USE FOR UNKNOWN INDICATION
  10. COLESEVELAM HYDROCHLORIDE [Concomitant]
     Indication: DRUG USE FOR UNKNOWN INDICATION
     Dosage: 2 TABS BID
     Route: 048
  11. VICODIN [Concomitant]
     Indication: PAIN
  12. ACETYL SALICYLIC ACID COMPOUND TAB [Concomitant]
     Indication: DRUG USE FOR UNKNOWN INDICATION
     Route: 048
  13. GLIPIZIDE [Concomitant]
     Indication: DIABETES MELLITUS
     Route: 048
  14. PAIN PILL [Concomitant]
     Indication: INSOMNIA
     Dosage: AT HS
     Route: 048

REACTIONS (8)
  - ARTHRALGIA [None]
  - DYSPHAGIA [None]
  - FALL [None]
  - HIP FRACTURE [None]
  - INFECTION [None]
  - LYMPHOMA [None]
  - PAIN [None]
  - RHEUMATOID ARTHRITIS [None]
